FAERS Safety Report 7709716-2 (Version None)
Quarter: 2011Q3

REPORT INFORMATION
  Report Type: 
  Country: None (occurrence: None)
  Receive Date: 20110825
  Receipt Date: 20110817
  Transmission Date: 20111222
  Serious: Yes (Other)
  Sender: FDA-Public Use
  Company Number: CH-GLAXOSMITHKLINE-B0741786A

PATIENT
  Age: 1 Year
  Sex: Female
  Weight: 2.9 kg

DRUGS (9)
  1. ITINEROL B6 [Suspect]
     Indication: NAUSEA
     Route: 064
     Dates: start: 20100823
  2. VIRAMUNE [Suspect]
     Indication: HIV INFECTION
     Route: 064
     Dates: start: 20100808, end: 20100812
  3. BACTRIM [Suspect]
     Indication: PRODUCT USED FOR UNKNOWN INDICATION
     Route: 064
     Dates: start: 20100101
  4. KALETRA [Suspect]
     Indication: HIV INFECTION
     Route: 064
     Dates: start: 20100726
  5. ATOVAQUONE [Suspect]
     Indication: PRODUCT USED FOR UNKNOWN INDICATION
     Dosage: 1500MG PER DAY
     Route: 064
     Dates: start: 20100101
  6. TRUVADA [Suspect]
     Indication: HIV INFECTION
     Dosage: 200MG PER DAY
     Route: 064
     Dates: start: 20100101
  7. EFAVIRENZ [Suspect]
     Indication: HIV INFECTION
     Route: 064
     Dates: start: 20100101, end: 20100726
  8. PRIMPERAN TAB [Suspect]
     Indication: NAUSEA
     Route: 064
     Dates: start: 20100801
  9. MALTOFER [Suspect]
     Indication: PRODUCT USED FOR UNKNOWN INDICATION
     Route: 064
     Dates: start: 20100901

REACTIONS (1)
  - MATERNAL EXPOSURE DURING PREGNANCY [None]
